FAERS Safety Report 9720421 (Version 1)
Quarter: 2013Q4

REPORT INFORMATION
  Report Type: Report from Study
  Country: GB (occurrence: GB)
  Receive Date: 20131129
  Receipt Date: 20131129
  Transmission Date: 20140711
  Serious: Yes (Life-Threatening)
  Sender: FDA-Public Use
  Company Number: GB-ROCHE-1311467

PATIENT
  Sex: Female

DRUGS (3)
  1. RITUXIMAB [Suspect]
     Indication: RHEUMATOID ARTHRITIS
     Dosage: LAST DOSE PRIOR TO SAE 20 JUN 2013
     Route: 065
     Dates: start: 20111020
  2. METHOTREXATE [Concomitant]
  3. HYDROXYCHLOROQUINE [Concomitant]

REACTIONS (1)
  - Gastric cancer [Not Recovered/Not Resolved]
